FAERS Safety Report 10355602 (Version 2)
Quarter: 2014Q3

REPORT INFORMATION
  Report Type: Spontaneous
  Country: US (occurrence: US)
  Receive Date: 20140731
  Receipt Date: 20140731
  Transmission Date: 20150326
  Serious: Yes (Hospitalization, Disabling, Other)
  Sender: FDA-Public Use
  Company Number: US-009507513-2009SP043063

PATIENT
  Sex: Female
  Weight: 61.24 kg

DRUGS (2)
  1. NUVARING [Suspect]
     Active Substance: ETHINYL ESTRADIOL\ETONOGESTREL
     Indication: CONTRACEPTION
     Dosage: UNK
     Route: 067
     Dates: start: 200306, end: 20031219
  2. NUVARING [Suspect]
     Active Substance: ETHINYL ESTRADIOL\ETONOGESTREL
     Indication: MENSTRUAL CYCLE MANAGEMENT

REACTIONS (14)
  - Uterine leiomyoma [Unknown]
  - Limb discomfort [Unknown]
  - Eye swelling [Unknown]
  - Renal cyst [Unknown]
  - Hyperthyroidism [Unknown]
  - Pulmonary embolism [Unknown]
  - Stress [Unknown]
  - Basedow^s disease [Unknown]
  - Deep vein thrombosis [Unknown]
  - Depression [Unknown]
  - Palpitations [Unknown]
  - Pelvic mass [Unknown]
  - Anxiety [Unknown]
  - Off label use [Unknown]

NARRATIVE: CASE EVENT DATE: 200306
